FAERS Safety Report 7578791-0 (Version None)
Quarter: 2011Q2

REPORT INFORMATION
  Report Type: 
  Country: None (occurrence: None)
  Receive Date: 20110628
  Receipt Date: 20110615
  Transmission Date: 20111010
  Serious: Yes (Other)
  Sender: FDA-Public Use
  Company Number: HK-MYLANLABS-2011S1012762

PATIENT
  Age: 63 Year
  Sex: Female

DRUGS (5)
  1. ENALAPRIL MALEATE [Concomitant]
     Indication: HYPERTENSION
     Route: 065
  2. ACETAMINOPHEN [Concomitant]
     Indication: UPPER RESPIRATORY TRACT INFECTION
     Route: 065
  3. SIMVASTATIN [Interacting]
     Dosage: 80 MG DAILY
     Route: 065
  4. DILTIAZEM [Suspect]
     Indication: HYPERTENSION
     Route: 065
  5. SIMVASTATIN [Interacting]
     Indication: TYPE IIA HYPERLIPIDAEMIA
     Dosage: 40MG DAILY FOR 4 WEEKS; THEN INCREASED TO 80MG DAILY
     Route: 065

REACTIONS (2)
  - MYOPATHY [None]
  - DRUG INTERACTION [None]
